FAERS Safety Report 26130759 (Version 1)
Quarter: 2025Q4

REPORT INFORMATION
  Report Type: Spontaneous
  Country: CN (occurrence: CN)
  Receive Date: 20251208
  Receipt Date: 20251208
  Transmission Date: 20260118
  Serious: Yes (Hospitalization)
  Sender: NOVARTIS
  Company Number: CN-002147023-NVSC2025CN187141

PATIENT
  Age: 70 Year
  Sex: Female
  Weight: 65 kg

DRUGS (4)
  1. OXCARBAZEPINE [Suspect]
     Active Substance: OXCARBAZEPINE
     Indication: Epilepsy
     Dosage: 0.3 G, BID
     Route: 048
     Dates: start: 20251013, end: 20251030
  2. LEVETIRACETAM [Suspect]
     Active Substance: LEVETIRACETAM
     Indication: Epilepsy
     Dosage: 0.5 G, BID
     Route: 048
     Dates: start: 20251013, end: 20251102
  3. METRONIDAZOLE [Suspect]
     Active Substance: METRONIDAZOLE
     Indication: Mouth ulceration
     Dosage: 3 MG, QD
     Route: 048
     Dates: start: 20251029, end: 20251030
  4. ATORVASTATIN CALCIUM [Concomitant]
     Active Substance: ATORVASTATIN CALCIUM
     Indication: Lipid metabolism disorder
     Dosage: 20 MG, QD
     Route: 048
     Dates: start: 20251020, end: 20251102

REACTIONS (4)
  - Drug eruption [Recovered/Resolved]
  - Papule [Recovering/Resolving]
  - Hyperpyrexia [Recovering/Resolving]
  - Ulcer [Recovering/Resolving]

NARRATIVE: CASE EVENT DATE: 20251030
